FAERS Safety Report 23572719 (Version 1)
Quarter: 2024Q1

REPORT INFORMATION
  Report Type: Spontaneous
  Country: US (occurrence: US)
  Receive Date: 20240227
  Receipt Date: 20240227
  Transmission Date: 20240410
  Serious: No
  Sender: FDA-Public Use
  Company Number: US-BRISTOL-MYERS SQUIBB COMPANY-2024-030682

PATIENT
  Age: 33 Year
  Sex: Female

DRUGS (2)
  1. ELIQUIS [Suspect]
     Active Substance: APIXABAN
     Indication: Deep vein thrombosis
     Dosage: TWO TABLETS TWICE DAILY FOR 7 DAYS AND STARTING ON DAY 8, ONE TABLET TWICE DAILY
     Route: 048
     Dates: start: 20240215, end: 20240221
  2. ELIQUIS [Suspect]
     Active Substance: APIXABAN
     Dosage: TWO TABLETS TWICE DAILY FOR 7 DAYS AND STARTING ON DAY 8, ONE TABLET TWICE DAILY
     Route: 048
     Dates: start: 20240222

REACTIONS (3)
  - Product dose omission in error [Unknown]
  - Pruritus [Unknown]
  - Lip pruritus [Unknown]

NARRATIVE: CASE EVENT DATE: 20240222
